FAERS Safety Report 18655787 (Version 1)
Quarter: 2020Q4

REPORT INFORMATION
  Report Type: Spontaneous
  Country: US (occurrence: US)
  Receive Date: 20201223
  Receipt Date: 20201223
  Transmission Date: 20210114
  Serious: No
  Sender: FDA-Public Use
  Company Number: US-TEVA-2020-US-1860768

PATIENT
  Age: 74 Year
  Sex: Female

DRUGS (2)
  1. DEXEDRINE [Concomitant]
     Active Substance: DEXTROAMPHETAMINE SULFATE
     Route: 065
  2. LORAZEPAM ACTAVIS [Suspect]
     Active Substance: LORAZEPAM
     Indication: ANXIETY
     Route: 065

REACTIONS (5)
  - Drug ineffective [Unknown]
  - Anxiety [Not Recovered/Not Resolved]
  - Nervousness [Unknown]
  - Nasal operation [Not Recovered/Not Resolved]
  - Abnormal sensation in eye [Not Recovered/Not Resolved]

NARRATIVE: CASE EVENT DATE: 2020
